FAERS Safety Report 6500325-X (Version None)
Quarter: 2009Q4

REPORT INFORMATION
  Report Type: 
  Country: None (occurrence: None)
  Receive Date: 20091216
  Receipt Date: 20091208
  Transmission Date: 20100525
  Serious: Yes (Other)
  Sender: FDA-Public Use
  Company Number: US-SANOFI-AVENTIS-2009SA001352

PATIENT
  Age: 85 Year
  Sex: Female
  Weight: 75.7 kg

DRUGS (4)
  1. MULTAQ [Suspect]
     Indication: ATRIAL FLUTTER
     Route: 048
     Dates: start: 20091030, end: 20091102
  2. MULTAQ [Suspect]
     Indication: SUPRAVENTRICULAR TACHYCARDIA
     Route: 048
     Dates: start: 20091030, end: 20091102
  3. COENZYME Q10 [Concomitant]
     Indication: VITAMIN SUPPLEMENTATION
     Route: 065
  4. MICROGENICS PROBIOTIC 8 [Concomitant]

REACTIONS (3)
  - DYSPNOEA [None]
  - PRURITUS [None]
  - URINARY RETENTION [None]
